FAERS Safety Report 4982202-9 (Version None)
Quarter: 2006Q2

REPORT INFORMATION
  Report Type: 
  Country: None (occurrence: None)
  Receive Date: 20060424
  Receipt Date: 20060424
  Transmission Date: 20061013
  Serious: Yes (Disabling)
  Sender: FDA-Public Use
  Company Number: None

PATIENT
  Age: 56 Year
  Sex: Female
  Weight: 81.6475 kg

DRUGS (1)
  1. FOSAMAX PLUS D [Suspect]
     Indication: OSTEOPOROSIS
     Dosage: ONE TABLET   WEEKLY -1XWEEK-  PO
     Route: 048
     Dates: start: 20060101, end: 20060426

REACTIONS (4)
  - BONE PAIN [None]
  - PAIN [None]
  - STOMATITIS [None]
  - TREATMENT NONCOMPLIANCE [None]
